FAERS Safety Report 4947587-8 (Version None)
Quarter: 2006Q1

REPORT INFORMATION
  Report Type: 
  Country: None (occurrence: None)
  Receive Date: 20060320
  Receipt Date: 20060314
  Transmission Date: 20060701
  Serious: Yes (Other)
  Sender: FDA-Public Use
  Company Number: US-JNJFOC-20060303621

PATIENT
  Sex: Female
  Weight: 62.14 kg

DRUGS (15)
  1. FLEXERIL [Suspect]
     Indication: BACK PAIN
     Dates: start: 20051205, end: 20051206
  2. ROZEREM [Interacting]
     Route: 048
  3. SEROQUEL [Interacting]
     Indication: ANXIETY
     Dosage: 50MG Q8HRS AND 100MG HS
     Route: 048
  4. LEXAPRO [Interacting]
     Indication: ANXIETY
     Route: 048
     Dates: start: 20051124, end: 20051206
  5. CLONIDINE [Concomitant]
     Indication: SLEEP DISORDER
     Route: 048
     Dates: start: 20051124, end: 20051206
  6. VALIUM [Concomitant]
     Dosage: VARYING DOSES
     Route: 048
     Dates: start: 20051123, end: 20051125
  7. VISTARIL [Concomitant]
     Indication: ANXIETY
     Route: 048
  8. TRAZADONE [Concomitant]
     Indication: SLEEP DISORDER
     Route: 048
  9. IBUPROFEN [Concomitant]
     Indication: HEADACHE
     Route: 048
     Dates: start: 20051122, end: 20051129
  10. IBUPROFEN [Concomitant]
     Indication: BACK PAIN
     Route: 048
     Dates: start: 20051122, end: 20051129
  11. TORADOL [Concomitant]
     Dates: start: 20051129, end: 20051202
  12. TORADOL [Concomitant]
     Indication: BACK PAIN
     Dosage: 30 MG, ONCE, INTRAMUSCULAR
     Dates: start: 20051129, end: 20051202
  13. KEFLEX [Concomitant]
     Route: 048
     Dates: start: 20051128, end: 20051205
  14. TIGAN [Concomitant]
     Indication: NAUSEA
     Route: 048
     Dates: start: 20051202, end: 20051204
  15. DIFLUCAN [Concomitant]
     Indication: VAGINAL CANDIDIASIS
     Route: 048

REACTIONS (7)
  - ARRHYTHMIA [None]
  - DRUG INTERACTION [None]
  - ELECTROCARDIOGRAM QT CORRECTED INTERVAL PROLONGED [None]
  - PALPITATIONS [None]
  - SINUS TACHYCARDIA [None]
  - SUPRAVENTRICULAR EXTRASYSTOLES [None]
  - VERTIGO [None]
